FAERS Safety Report 10244915 (Version 3)
Quarter: 2014Q4

REPORT INFORMATION
  Report Type: Spontaneous
  Country: US (occurrence: US)
  Receive Date: 20140618
  Receipt Date: 20141218
  Transmission Date: 20150528
  Serious: No
  Sender: FDA-Public Use
  Company Number: US-GALDERMA-US14001934

PATIENT
  Age: 34 Year
  Sex: Female

DRUGS (4)
  1. CLINIQUE COSMETICS REDNESS SOLUTIONS LINE [Concomitant]
     Route: 061
     Dates: start: 2010
  2. MIRVASO [Suspect]
     Active Substance: BRIMONIDINE TARTRATE
     Indication: ROSACEA
     Dosage: 0.33%
     Route: 061
     Dates: start: 20140505, end: 201406
  3. CLINIUE COSMETICS SKIN CARE LINE [Concomitant]
     Route: 061
     Dates: start: 2010
  4. DOXYCYCLINE. [Concomitant]
     Active Substance: DOXYCYCLINE
     Indication: ROSACEA
     Dosage: 50 MG
     Dates: start: 2010

REACTIONS (5)
  - Activities of daily living impaired [Recovered/Resolved]
  - Skin burning sensation [Recovered/Resolved]
  - Erythema [Recovered/Resolved]
  - Condition aggravated [Recovered/Resolved]
  - Flushing [Recovered/Resolved]

NARRATIVE: CASE EVENT DATE: 20140505
